FAERS Safety Report 8360551-4 (Version None)
Quarter: 2012Q2

REPORT INFORMATION
  Report Type: 
  Country: None (occurrence: None)
  Receive Date: 20120515
  Receipt Date: 20120510
  Transmission Date: 20120825
  Serious: Yes (Other)
  Sender: FDA-Public Use
  Company Number: PHHY2011CA56794

PATIENT
  Sex: Female

DRUGS (1)
  1. GILENYA [Suspect]
     Indication: RELAPSING-REMITTING MULTIPLE SCLEROSIS
     Dosage: 0.5 MG, QD
     Route: 048
     Dates: start: 20110610, end: 20120406

REACTIONS (10)
  - FALL [None]
  - MUSCULOSKELETAL STIFFNESS [None]
  - DEPRESSED MOOD [None]
  - PLATELET COUNT DECREASED [None]
  - GAIT DISTURBANCE [None]
  - HYPOAESTHESIA ORAL [None]
  - RIB FRACTURE [None]
  - MULTIPLE SCLEROSIS RELAPSE [None]
  - HYPOAESTHESIA [None]
  - MUSCULAR WEAKNESS [None]
